FAERS Safety Report 5956400-1 (Version None)
Quarter: 2008Q4

REPORT INFORMATION
  Report Type: 
  Country: None (occurrence: None)
  Receive Date: 20081112
  Receipt Date: 20081027
  Transmission Date: 20090506
  Serious: Yes (Hospitalization)
  Sender: FDA-Public Use
  Company Number: 002#2#2008-00356

PATIENT
  Age: 78 Year
  Sex: Male
  Weight: 81.6475 kg

DRUGS (9)
  1. NEUPRO [Suspect]
     Indication: RESTLESS LEGS SYNDROME
     Dosage: 2MG/24H,1 IN 1 D,TRANSDERMAL : 4MG/24H,1 IN 1 D,TRANSDERMAL : 6MG/24H,1 IN 1 D,TRANSDERMAL
     Route: 062
     Dates: start: 20070101
  2. NEUPRO [Suspect]
     Indication: RESTLESS LEGS SYNDROME
     Dosage: 2MG/24H,1 IN 1 D,TRANSDERMAL : 4MG/24H,1 IN 1 D,TRANSDERMAL : 6MG/24H,1 IN 1 D,TRANSDERMAL
     Route: 062
     Dates: start: 20071201
  3. LOVASTATIN [Concomitant]
  4. LISINOPRIL [Concomitant]
  5. METOPROLOL [Concomitant]
  6. TRIAMTERENE AND HYDROCHLOROTHIAZIDE [Concomitant]
  7. FOLIC ACID [Concomitant]
  8. VIT B12 [Concomitant]
  9. OXYCODONE HCL [Concomitant]

REACTIONS (4)
  - CONCUSSION [None]
  - FALL [None]
  - GAIT DISTURBANCE [None]
  - SUBDURAL HAEMATOMA [None]
